FAERS Safety Report 8606765 (Version 3)
Quarter: 2014Q1

REPORT INFORMATION
  Report Type: Spontaneous
  Country: US (occurrence: US)
  Receive Date: 20120611
  Receipt Date: 20140123
  Transmission Date: 20141002
  Serious: Yes (Hospitalization, Other)
  Sender: FDA-Public Use
  Company Number: US-ASTRAZENECA-2012SE36194

PATIENT
  Age: 22275 Day
  Sex: Female
  Weight: 74.8 kg

DRUGS (11)
  1. NEXIUM [Suspect]
     Indication: GASTROOESOPHAGEAL REFLUX DISEASE
     Route: 048
  2. NEXIUM [Suspect]
     Indication: DYSPEPSIA
     Route: 048
  3. NEXIUM [Suspect]
     Indication: GASTROOESOPHAGEAL REFLUX DISEASE
     Route: 048
     Dates: start: 20020819, end: 20110330
  4. NEXIUM [Suspect]
     Indication: DYSPEPSIA
     Route: 048
     Dates: start: 20020819, end: 20110330
  5. OMEPRAZOLE MAGNESIUM [Suspect]
     Route: 048
  6. GENERIC PREVACID OTC [Concomitant]
     Indication: GASTROOESOPHAGEAL REFLUX DISEASE
     Dates: start: 2011, end: 2013
  7. PROPANOLOL HCL [Concomitant]
     Indication: CARDIAC DISORDER
  8. GABAPENTIN [Concomitant]
     Indication: NEURALGIA
  9. COQ10 [Concomitant]
  10. ADVIL [Concomitant]
  11. INDERAL [Concomitant]

REACTIONS (8)
  - Ankle fracture [Unknown]
  - Cataract [Unknown]
  - Osteoporosis [Unknown]
  - Multiple fractures [Unknown]
  - Arthritis [Unknown]
  - Osteoarthritis [Unknown]
  - Intervertebral disc degeneration [Unknown]
  - Macular degeneration [Unknown]
